FAERS Safety Report 5832076-9 (Version None)
Quarter: 2008Q3

REPORT INFORMATION
  Report Type: 
  Country: None (occurrence: None)
  Receive Date: 20080804
  Receipt Date: 20080723
  Transmission Date: 20090109
  Serious: Yes (Hospitalization)
  Sender: FDA-Public Use
  Company Number: US-ROCHE-577097

PATIENT
  Age: 17 Year
  Sex: Male
  Weight: 67 kg

DRUGS (3)
  1. ISOTRETINOIN [Suspect]
     Indication: ACNE
     Route: 048
     Dates: start: 20071101, end: 20080501
  2. ETANERCEPT [Suspect]
     Indication: ANKYLOSING SPONDYLITIS
     Dosage: OTHER INDICATION REPORTED AS SACROILITIS.
     Route: 058
     Dates: start: 20040930, end: 20050301
  3. ETANERCEPT [Suspect]
     Route: 058
     Dates: end: 20080501

REACTIONS (2)
  - APPENDICITIS [None]
  - LIVER ABSCESS [None]
